FAERS Safety Report 8934285 (Version 2)
Quarter: 2012Q4

REPORT INFORMATION
  Report Type: 
  Country: FR (occurrence: FR)
  Receive Date: 20121129
  Receipt Date: 20121211
  Transmission Date: 20130627
  Serious: Yes (Life-Threatening, Hospitalization)
  Sender: FDA-Public Use
  Company Number: FR-ROCHE-1161338

PATIENT
  Sex: Female
  Weight: 42 kg

DRUGS (4)
  1. AVASTIN [Suspect]
     Indication: OVARIAN CANCER
     Route: 042
     Dates: start: 20120206
  2. AVASTIN [Suspect]
     Route: 042
     Dates: start: 20121009, end: 201211
  3. CARBOPLATIN [Concomitant]
  4. TAXOL [Concomitant]

REACTIONS (2)
  - Gastrointestinal perforation [Recovering/Resolving]
  - Intestinal obstruction [Not Recovered/Not Resolved]
